FAERS Safety Report 26165545 (Version 1)
Quarter: 2025Q4

REPORT INFORMATION
  Report Type: Report from Study
  Country: EU (occurrence: EU)
  Receive Date: 20251216
  Receipt Date: 20251216
  Transmission Date: 20260117
  Serious: Yes (Other)
  Sender: CSL BEHRING
  Company Number: EU-BEH-2025204346

PATIENT
  Age: 70 Year
  Sex: Female
  Weight: 48 kg

DRUGS (8)
  1. HIZENTRA [Suspect]
     Active Substance: HUMAN IMMUNOGLOBULIN G
     Indication: Chronic inflammatory demyelinating polyradiculoneuropathy
     Dosage: 19 G, QW (10G -9 G)
     Route: 058
     Dates: start: 20250227, end: 20250424
  2. KARDEGIC [Concomitant]
     Active Substance: ASPIRIN DL-LYSINE
  3. ATORVASTATIN [Concomitant]
     Active Substance: ATORVASTATIN
  4. NICORANDIL [Concomitant]
     Active Substance: NICORANDIL
  5. TENORMIN [Concomitant]
     Active Substance: ATENOLOL
  6. VASTAREL [Concomitant]
     Active Substance: TRIMETAZIDINE DIHYDROCHLORIDE
  7. AVOCADO OIL\SOYBEAN OIL [Concomitant]
     Active Substance: AVOCADO OIL\SOYBEAN OIL
  8. Passiflora [Concomitant]

REACTIONS (13)
  - Hypertensive crisis [Unknown]
  - Hypertension [Unknown]
  - Malaise [Recovered/Resolved]
  - Dizziness [Unknown]
  - Nausea [Recovered/Resolved]
  - Vomiting [Recovered/Resolved]
  - Feeling cold [Unknown]
  - Rash [Recovered/Resolved]
  - Chills [Recovered/Resolved]
  - Vomiting [Unknown]
  - Headache [Unknown]
  - Skin plaque [Unknown]
  - Rash [Unknown]

NARRATIVE: CASE EVENT DATE: 20250101
